FAERS Safety Report 5969292-1 (Version None)
Quarter: 2008Q4

REPORT INFORMATION
  Report Type: 
  Country: None (occurrence: None)
  Receive Date: 20081126
  Receipt Date: 20081114
  Transmission Date: 20090506
  Serious: No
  Sender: FDA-Public Use
  Company Number: US-B.I. PHARMACEUTICALS,INC./RIDGEFIELD-2007-BP-25726BP

PATIENT
  Sex: Female

DRUGS (6)
  1. SPIRIVA [Suspect]
     Indication: CHRONIC OBSTRUCTIVE PULMONARY DISEASE
     Route: 055
  2. SPIRIVA [Suspect]
     Indication: BRONCHITIS CHRONIC
  3. SPIRIVA [Suspect]
     Indication: DYSPNOEA
  4. SPIRIVA [Suspect]
     Indication: ASTHMA
  5. ADVAIR HFA [Concomitant]
     Indication: DYSPNOEA
  6. ALBUTEROL SULFATE [Concomitant]
     Indication: DYSPNOEA

REACTIONS (2)
  - HYPERSENSITIVITY [None]
  - URTICARIA [None]
